FAERS Safety Report 9345240 (Version 2)
Quarter: 2013Q2

REPORT INFORMATION
  Report Type: Spontaneous
  Country: DE (occurrence: DE)
  Receive Date: 20130612
  Receipt Date: 20130612
  Transmission Date: 20140414
  Serious: Yes (Other)
  Sender: FDA-Public Use
  Company Number: DE-BRISTOL-MYERS SQUIBB COMPANY-18703025

PATIENT
  Age: 43 Year
  Sex: Male
  Weight: 99 kg

DRUGS (3)
  1. METFORMIN HCL [Suspect]
     Indication: TYPE 2 DIABETES MELLITUS
  2. CIPROFLOXACIN [Concomitant]
     Dates: start: 20130317, end: 20130324
  3. FORXIGA [Suspect]

REACTIONS (1)
  - Cystitis haemorrhagic [Unknown]
